FAERS Safety Report 5216487-0 (Version None)
Quarter: 2006Q4

REPORT INFORMATION
  Report Type: 
  Country: None (occurrence: None)
  Receive Date: 20061129
  Receipt Date: 20051121
  Transmission Date: 20070319
  Serious: No
  Sender: FDA-Public Use
  Company Number: 2005UW16467

PATIENT
  Age: 60 Year
  Sex: Female

DRUGS (2)
  1. FASLODEX [Suspect]
     Indication: BREAST CANCER METASTATIC
     Dosage: 250 MG MONTH IM
     Route: 030
     Dates: start: 20050928, end: 20050928
  2. FEMARA [Concomitant]

REACTIONS (1)
  - DYSFUNCTIONAL UTERINE BLEEDING [None]
